FAERS Safety Report 7094537-7 (Version None)
Quarter: 2010Q4

REPORT INFORMATION
  Report Type: 
  Country: None (occurrence: None)
  Receive Date: 20101110
  Receipt Date: 20101101
  Transmission Date: 20110411
  Serious: Yes (Other)
  Sender: FDA-Public Use
  Company Number: US-CELGENEUS-163-20785-10110429

PATIENT
  Sex: Male

DRUGS (10)
  1. THALOMID [Suspect]
     Indication: MULTIPLE MYELOMA
     Route: 048
     Dates: start: 20090501
  2. THALOMID [Suspect]
     Route: 048
     Dates: start: 20101001
  3. MELPHALAN HYDROCHLORIDE [Concomitant]
     Route: 065
  4. PREDNISONE [Concomitant]
     Route: 065
  5. INSULIN [Concomitant]
     Route: 065
  6. LISINOPRIL [Concomitant]
     Route: 065
  7. SIMVASTATIN [Concomitant]
     Route: 065
  8. TAMSULOSIN [Concomitant]
     Route: 065
  9. WARFARIN [Concomitant]
     Route: 065
  10. STOOL SOFTENER [Concomitant]
     Route: 065

REACTIONS (4)
  - BLOOD IMMUNOGLOBULIN G INCREASED [None]
  - BONE PAIN [None]
  - HIP ARTHROPLASTY [None]
  - NEUROPATHY PERIPHERAL [None]
